FAERS Safety Report 19949724 (Version 1)
Quarter: 2021Q4

REPORT INFORMATION
  Report Type: Spontaneous
  Country: US (occurrence: US)
  Receive Date: 20211012
  Receipt Date: 20211012
  Transmission Date: 20220303
  Serious: Yes (Hospitalization)
  Sender: FDA-Public Use
  Company Number: None

PATIENT
  Age: 67 Year
  Sex: Male

DRUGS (2)
  1. RIVAROXABAN [Suspect]
     Active Substance: RIVAROXABAN
     Indication: Vascular operation
     Route: 048
     Dates: start: 20210819, end: 20210830
  2. ASPIRIN [Suspect]
     Active Substance: ASPIRIN
     Indication: Vascular operation
     Route: 048
     Dates: start: 20210623, end: 20210902

REACTIONS (2)
  - Anaemia [None]
  - Melaena [None]

NARRATIVE: CASE EVENT DATE: 20210830
